FAERS Safety Report 8707280 (Version 4)
Quarter: 2013Q1

REPORT INFORMATION
  Report Type: Spontaneous
  Country: JP (occurrence: JP)
  Receive Date: 20120803
  Receipt Date: 20130226
  Transmission Date: 20140127
  Serious: Yes (Hospitalization, Other)
  Sender: FDA-Public Use
  Company Number: PHHY2012JP066608

PATIENT
  Age: 27 Year
  Sex: Male

DRUGS (13)
  1. EVEROLIMUS [Suspect]
     Indication: HEART TRANSPLANT
     Dosage: UNK UKN, UNK
     Route: 048
  2. EVEROLIMUS [Suspect]
     Dosage: UNK UKN, UNK
  3. EVEROLIMUS [Suspect]
     Dosage: UNK
  4. CICLOSPORIN [Suspect]
     Indication: HEART TRANSPLANT
     Dosage: UNK UKN, UNK
  5. CICLOSPORIN [Suspect]
     Dosage: UNK UKN, UNK
  6. TACROLIMUS [Suspect]
     Indication: IMMUNOSUPPRESSION
     Dosage: UNK UKN, UNK
  7. MYCOPHENOLATE MOFETIL [Suspect]
     Indication: IMMUNOSUPPRESSION
     Dosage: UNK UKN, UNK
  8. MYCOPHENOLATE MOFETIL [Suspect]
     Dosage: UNK UKN, UNK
  9. PREDNISOLONE [Suspect]
     Indication: IMMUNOSUPPRESSION
     Dosage: UNK UKN, UNK
     Route: 048
  10. PREDNISOLONE [Suspect]
     Dosage: UNK UKN, UNK
     Route: 048
  11. PREDNOL [Suspect]
     Dosage: 1000 MG, UNK
  12. IMMUNOGLOBULIN [Concomitant]
     Dosage: 5 G, UNK
  13. CORTICOSTEROIDS [Concomitant]
     Dosage: UNK UKN, UNK

REACTIONS (9)
  - Posterior reversible encephalopathy syndrome [Recovering/Resolving]
  - Speech disorder [Unknown]
  - Hemiparesis [Unknown]
  - Coordination abnormal [Unknown]
  - Hemiplegia [Unknown]
  - Dizziness [Unknown]
  - Grand mal convulsion [Unknown]
  - Heart transplant rejection [Recovering/Resolving]
  - Leukopenia [Unknown]
